FAERS Safety Report 4741354-6 (Version None)
Quarter: 2005Q3

REPORT INFORMATION
  Report Type: 
  Country: None (occurrence: None)
  Receive Date: 20050808
  Receipt Date: 20050722
  Transmission Date: 20060218
  Serious: Yes (Other)
  Sender: FDA-Public Use
  Company Number: USA0507103553

PATIENT
  Age: 58 Year
  Sex: Male

DRUGS (2)
  1. HUMALOG [Suspect]
     Indication: DIABETES MELLITUS
     Dosage: UNK
  2. HUMULIN U [Suspect]
     Indication: DIABETES MELLITUS
     Dosage: 48 U DAY
     Dates: start: 19970101

REACTIONS (13)
  - BLOOD GLUCOSE INCREASED [None]
  - BLOOD PRESSURE DECREASED [None]
  - DYSGEUSIA [None]
  - FALL [None]
  - MYALGIA [None]
  - PAIN [None]
  - PAROSMIA [None]
  - PHARMACEUTICAL PRODUCT COMPLAINT [None]
  - POOR QUALITY DRUG ADMINISTERED [None]
  - RENAL PAIN [None]
  - SLEEP DISORDER [None]
  - TEMPERATURE INTOLERANCE [None]
  - TREMOR [None]
